FAERS Safety Report 17580185 (Version 4)
Quarter: 2020Q2

REPORT INFORMATION
  Report Type: Spontaneous
  Country: US (occurrence: US)
  Receive Date: 20200325
  Receipt Date: 20200423
  Transmission Date: 20200713
  Serious: Yes (Other)
  Sender: FDA-Public Use
  Company Number: US-PFIZER INC-2020126693

PATIENT
  Age: 54 Year
  Sex: Female

DRUGS (1)
  1. XELJANZ [Suspect]
     Active Substance: TOFACITINIB CITRATE
     Dosage: 5 MG, UNK
     Dates: start: 201912

REACTIONS (4)
  - Nasopharyngitis [Recovering/Resolving]
  - Influenza [Unknown]
  - Oropharyngeal pain [Recovering/Resolving]
  - Fungal infection [Not Recovered/Not Resolved]
